FAERS Safety Report 23164537 (Version 6)
Quarter: 2024Q2

REPORT INFORMATION
  Report Type: Spontaneous
  Country: GB (occurrence: GB)
  Receive Date: 20231109
  Receipt Date: 20240411
  Transmission Date: 20240716
  Serious: No
  Sender: FDA-Public Use
  Company Number: GB-PFIZER INC-PV202300177771

PATIENT
  Age: 21 Year
  Sex: Male

DRUGS (1)
  1. GENOTROPIN [Suspect]
     Active Substance: SOMATROPIN
     Indication: Growth hormone deficiency
     Dosage: 0.8 MG
     Route: 058

REACTIONS (4)
  - Accidental exposure to product [Unknown]
  - Exposure via skin contact [Unknown]
  - Device difficult to use [Unknown]
  - Device breakage [Unknown]
